FAERS Safety Report 10510780 (Version 4)
Quarter: 2017Q4

REPORT INFORMATION
  Report Type: Spontaneous
  Country: US (occurrence: US)
  Receive Date: 20141010
  Receipt Date: 20171113
  Transmission Date: 20180320
  Serious: Yes (Other)
  Sender: FDA-Public Use
  Company Number: US-PFIZER INC-2014277630

PATIENT
  Sex: Female
  Weight: 68 kg

DRUGS (1)
  1. DILANTIN [Suspect]
     Active Substance: PHENYTOIN
     Indication: TRIGEMINAL NEURALGIA
     Dosage: ABOUT ONCE OVER A WEEK

REACTIONS (7)
  - Rash generalised [Recovered/Resolved]
  - Product use in unapproved indication [Unknown]
  - Ulcer [Unknown]
  - Loss of consciousness [Unknown]
  - Drug hypersensitivity [Unknown]
  - Balance disorder [Unknown]
  - Dizziness postural [Unknown]
